FAERS Safety Report 9759786 (Version 5)
Quarter: 2015Q3

REPORT INFORMATION
  Report Type: Spontaneous
  Country: US (occurrence: US)
  Receive Date: 20131216
  Receipt Date: 20150806
  Transmission Date: 20151125
  Serious: Yes (Other)
  Sender: FDA-Public Use
  Company Number: US-GILEAD-2010-0028489

PATIENT
  Age: 47 Year
  Sex: Male
  Weight: 88.45 kg

DRUGS (9)
  1. HYDROCODONE-APAP [Concomitant]
     Active Substance: ACETAMINOPHEN\HYDROCODONE
  2. SPIRIVA [Concomitant]
     Active Substance: TIOTROPIUM BROMIDE MONOHYDRATE
  3. LETAIRIS [Suspect]
     Active Substance: AMBRISENTAN
     Indication: PULMONARY ARTERIAL HYPERTENSION
     Dosage: 10 MG, UNK
     Route: 065
     Dates: start: 20100720
  4. KAPIDEX [Concomitant]
     Active Substance: DEXLANSOPRAZOLE
  5. TRIAZOLAM. [Concomitant]
     Active Substance: TRIAZOLAM
  6. LETAIRIS [Suspect]
     Active Substance: AMBRISENTAN
     Dosage: 5 MG, UNK
     Route: 048
     Dates: start: 20090730, end: 20100719
  7. PROVENTIL [Concomitant]
     Active Substance: ALBUTEROL
  8. AMOXICILLIN. [Concomitant]
     Active Substance: AMOXICILLIN
  9. NASACORT [Concomitant]
     Active Substance: TRIAMCINOLONE ACETONIDE

REACTIONS (2)
  - Hepatic enzyme increased [Unknown]
  - Blood bilirubin increased [Unknown]
